FAERS Safety Report 23343854 (Version 3)
Quarter: 2024Q3

REPORT INFORMATION
  Report Type: Spontaneous
  Country: DE (occurrence: DE)
  Receive Date: 20231227
  Receipt Date: 20240912
  Transmission Date: 20241017
  Serious: No
  Sender: INCYTE
  Company Number: DE-ADIENNEP-2023AD000631

PATIENT

DRUGS (13)
  1. RUXOLITINIB [Suspect]
     Active Substance: RUXOLITINIB
     Indication: Immune system disorder
     Dosage: 50 MG/M2, QD (TWO DOSES OF RUXOLITINIB PER DAY)
     Route: 065
  2. RUXOLITINIB [Suspect]
     Active Substance: RUXOLITINIB
     Dosage: 75 MG/M2 /D IN THREE DAILY DOSES
     Route: 065
  3. RUXOLITINIB [Suspect]
     Active Substance: RUXOLITINIB
     Dosage: 20 MG/M2, QD
     Route: 065
  4. RUXOLITINIB [Suspect]
     Active Substance: RUXOLITINIB
     Dosage: 10 MG/M2, QD
     Route: 048
  5. TOCILIZUMAB [Suspect]
     Active Substance: TOCILIZUMAB
     Indication: Immune system disorder
     Dosage: 12 MG/KG/DOSE
     Route: 065
  6. TOCILIZUMAB [Suspect]
     Active Substance: TOCILIZUMAB
     Dosage: 4*12 MG/KG/DOSE
     Route: 065
  7. FLUDARABINE [Concomitant]
     Active Substance: FLUDARABINE PHOSPHATE
     Indication: Bone marrow conditioning regimen
     Dosage: 5?1 MG/KG
     Route: 065
  8. MELPHALAN [Concomitant]
     Active Substance: MELPHALAN
     Indication: Bone marrow conditioning regimen
     Dosage: 2?70 MG/ M2
     Route: 065
  9. HYDROXYUREA [Concomitant]
     Active Substance: HYDROXYUREA
     Indication: Bone marrow conditioning regimen
     Dosage: 9*30 MG/KG
     Route: 065
  10. THIOTEPA [Concomitant]
     Active Substance: THIOTEPA
     Indication: Bone marrow conditioning regimen
     Dosage: 200 MG/M2
     Route: 065
  11. ALEMTUZUMAB [Concomitant]
     Active Substance: ALEMTUZUMAB
     Indication: Bone marrow conditioning regimen
     Dosage: 2?0.5 MG/KG
     Route: 065
  12. TACROLIMUS [Concomitant]
     Active Substance: TACROLIMUS
     Indication: Prophylaxis against graft versus host disease
     Dosage: 0.075 MG/KG, QD
     Route: 065
  13. MYCOPHENOLATE MOFETIL [Concomitant]
     Active Substance: MYCOPHENOLATE MOFETIL
     Indication: Prophylaxis against graft versus host disease
     Dosage: 1200 MG/M2, QD
     Route: 065

REACTIONS (1)
  - Off label use [Unknown]
